FAERS Safety Report 25656119 (Version 2)
Quarter: 2025Q3

REPORT INFORMATION
  Report Type: Spontaneous
  Country: GB (occurrence: GB)
  Receive Date: 20250807
  Receipt Date: 20250818
  Transmission Date: 20251021
  Serious: Yes (Other)
  Sender: GALPHARM INTERNATIONAL
  Company Number: None

PATIENT
  Age: 19 Year
  Sex: Male
  Weight: 109 kg

DRUGS (3)
  1. LORATADINE [Suspect]
     Active Substance: LORATADINE
     Indication: Adverse drug reaction
     Dosage: 10 MG, QD
     Route: 065
     Dates: start: 20250620, end: 20250704
  2. LORATADINE [Suspect]
     Active Substance: LORATADINE
     Indication: Seasonal allergy
  3. RITALIN XL [Concomitant]
     Indication: Attention deficit hyperactivity disorder
     Dosage: 40 MG, QD
     Route: 065
     Dates: start: 2025, end: 20250501

REACTIONS (3)
  - Tachycardia [Recovered/Resolved]
  - Blood pressure diastolic [Recovered/Resolved]
  - Blood pressure increased [Recovered/Resolved]

NARRATIVE: CASE EVENT DATE: 20250620
